FAERS Safety Report 4660617-6 (Version None)
Quarter: 2005Q2

REPORT INFORMATION
  Report Type: 
  Country: None (occurrence: None)
  Receive Date: 20050425
  Receipt Date: 20041001
  Transmission Date: 20051028
  Serious: No
  Sender: FDA-Public Use
  Company Number: US094723

PATIENT
  Age: 59 Year
  Sex: Male

DRUGS (14)
  1. SENSIPAR [Suspect]
     Indication: HYPERPARATHYROIDISM SECONDARY
     Dosage: 30 MG, 1 IN 1 DAYS,PO
     Route: 048
     Dates: start: 20040708, end: 20040914
  2. ATORVASTATIN CALCIUM [Concomitant]
     Dosage: 20 MG, 1 IN 1 DAYS
     Dates: start: 20040201, end: 20040914
  3. ISOPHANE INSULIN [Concomitant]
  4. INSULIN LISPRO [Concomitant]
  5. NIFEDIPINE [Concomitant]
  6. SODIUM BICARBONATE [Concomitant]
  7. CLONIDINE [Concomitant]
  8. WARFARIN SODIUM [Concomitant]
  9. ENALAPRIL MALEATE [Concomitant]
  10. DOXAZOSIN [Concomitant]
  11. FUROSEMIDE [Concomitant]
  12. CETIRIZINE HYDROCHLORIDE [Concomitant]
  13. TOCOPHEROL CONCENTRATE CAP [Concomitant]
  14. PHOSLO [Concomitant]

REACTIONS (1)
  - HEPATIC ENZYME INCREASED [None]
